FAERS Safety Report 14000974 (Version 2)
Quarter: 2018Q1

REPORT INFORMATION
  Report Type: Spontaneous
  Country: US (occurrence: US)
  Receive Date: 20170922
  Receipt Date: 20180125
  Transmission Date: 20180508
  Serious: No
  Sender: FDA-Public Use
  Company Number: US-JNJFOC-20170717014

PATIENT
  Sex: Female
  Weight: 72.58 kg

DRUGS (3)
  1. XARELTO [Suspect]
     Active Substance: RIVAROXABAN
     Indication: ATRIAL FLUTTER
     Route: 048
     Dates: start: 2015, end: 2015
  2. XARELTO [Suspect]
     Active Substance: RIVAROXABAN
     Indication: TRANSIENT ISCHAEMIC ATTACK
     Route: 048
     Dates: start: 2015, end: 2015
  3. CORGARD [Concomitant]
     Active Substance: NADOLOL
     Indication: CARDIAC DISORDER
     Route: 048
     Dates: start: 2015

REACTIONS (3)
  - Off label use [Unknown]
  - Skin discolouration [Unknown]
  - Product use in unapproved indication [Unknown]

NARRATIVE: CASE EVENT DATE: 2015
